FAERS Safety Report 4388968-3 (Version None)
Quarter: 2004Q2

REPORT INFORMATION
  Report Type: 
  Country: None (occurrence: None)
  Receive Date: 20040628
  Receipt Date: 20040618
  Transmission Date: 20050107
  Serious: No
  Sender: FDA-Public Use
  Company Number: HQWYE527021JUN04

PATIENT
  Age: 36 Year
  Sex: Male

DRUGS (1)
  1. EFFEXOR XR [Suspect]
     Dates: start: 20040101

REACTIONS (3)
  - CONTUSION [None]
  - PAIN [None]
  - THROMBOSIS [None]
